FAERS Safety Report 5474466-2 (Version None)
Quarter: 2007Q4

REPORT INFORMATION
  Report Type: 
  Country: None (occurrence: None)
  Receive Date: 20071002
  Receipt Date: 20070921
  Transmission Date: 20080405
  Serious: Yes (Other)
  Sender: FDA-Public Use
  Company Number: PHHO2007BR15765

PATIENT
  Age: 74 Year
  Sex: Male

DRUGS (9)
  1. DIOVAN HCT [Suspect]
     Indication: CARDIAC FAILURE
     Dosage: UNK, UNK
     Route: 048
  2. CARVEDILOL [Concomitant]
     Dosage: 25 MG, BID
     Route: 048
  3. MONOCORDIL [Concomitant]
     Dosage: 20 MG, TID
     Route: 048
  4. PLAVIX [Concomitant]
     Dosage: UNK, QD
     Route: 048
  5. VYTORIN [Concomitant]
     Indication: BLOOD CHOLESTEROL ABNORMAL
     Dosage: 10/20, QD
     Route: 048
  6. SERTRALINE [Concomitant]
     Indication: DEPRESSION
     Dosage: 50 MG, QD
     Route: 048
  7. SYNTHROID [Concomitant]
     Indication: THYROID DISORDER
     Dosage: 25 UG, QD
     Route: 048
  8. OMEPRAZOLE [Concomitant]
     Dosage: 20 MG, QD
     Route: 048
  9. CILOSTAZOL [Concomitant]
     Indication: PERIPHERAL VASCULAR DISORDER
     Dosage: UNK, BID
     Route: 048

REACTIONS (3)
  - DIZZINESS [None]
  - HYPOTENSION [None]
  - PETIT MAL EPILEPSY [None]
